FAERS Safety Report 24180234 (Version 5)
Quarter: 2025Q1

REPORT INFORMATION
  Report Type: Report from Study
  Country: US (occurrence: US)
  Receive Date: 20240806
  Receipt Date: 20250306
  Transmission Date: 20250409
  Serious: Yes (Other)
  Sender: XERIS PHARMACEUTICALS
  Company Number: US-BRIAN CONNER SVP QUALITY AND CHIEF COMPLIANCE OFFICER-2024XER00119

PATIENT
  Sex: Female

DRUGS (7)
  1. RECORLEV [Suspect]
     Active Substance: LEVOKETOCONAZOLE
     Indication: Pituitary-dependent Cushing^s syndrome
     Route: 048
     Dates: start: 20220813
  2. RECORLEV [Suspect]
     Active Substance: LEVOKETOCONAZOLE
     Dosage: 2 TABLETS (300 MG), 2X/DAY
     Route: 048
     Dates: start: 20231020
  3. RECORLEV [Suspect]
     Active Substance: LEVOKETOCONAZOLE
     Dosage: 2 TABLETS (300 MG), 2X/DAY
     Route: 048
     Dates: start: 20250121
  4. ATORVASTATIN [Suspect]
     Active Substance: ATORVASTATIN
  5. LIRAGLUTIDE [Suspect]
     Active Substance: LIRAGLUTIDE
  6. INSULIN NOS [Suspect]
     Active Substance: INSULIN NOS
  7. MIRALAX [Concomitant]
     Active Substance: POLYETHYLENE GLYCOL 3350

REACTIONS (18)
  - Myocardial ischaemia [Unknown]
  - Productive cough [Unknown]
  - Blood phosphorus increased [Not Recovered/Not Resolved]
  - Arthralgia [Not Recovered/Not Resolved]
  - Influenza [Recovering/Resolving]
  - Sleep disorder [Recovering/Resolving]
  - Blood glucose increased [Unknown]
  - Brain fog [Not Recovered/Not Resolved]
  - Memory impairment [Not Recovered/Not Resolved]
  - Feeling abnormal [Not Recovered/Not Resolved]
  - Mass [Recovering/Resolving]
  - Fatigue [Recovering/Resolving]
  - Vomiting [Recovering/Resolving]
  - Diarrhoea [Recovering/Resolving]
  - Drug interaction [Unknown]
  - Unevaluable event [Not Recovered/Not Resolved]
  - Product dose omission in error [Not Recovered/Not Resolved]
  - Medication error [Not Recovered/Not Resolved]

NARRATIVE: CASE EVENT DATE: 20240101
